FAERS Safety Report 5411834-9 (Version None)
Quarter: 2007Q3

REPORT INFORMATION
  Report Type: 
  Country: None (occurrence: None)
  Receive Date: 20070713
  Receipt Date: 20070320
  Transmission Date: 20080115
  Serious: No
  Sender: FDA-Public Use
  Company Number: 2007SP001003

PATIENT
  Age: 73 Year
  Sex: Male
  Weight: 88.4514 kg

DRUGS (8)
  1. LUNESTA [Suspect]
     Indication: INSOMNIA
     Dosage: 3 MG;HS;ORAL
     Route: 048
     Dates: start: 20070101
  2. SYNTHROID [Concomitant]
  3. SINGULAIR [Concomitant]
  4. ATORVASTATIN CALCIUM [Concomitant]
  5. CLONOPIN [Concomitant]
  6. ZANTAC 150 [Concomitant]
  7. CYMBALTA [Concomitant]
  8. LITHOBID [Concomitant]

REACTIONS (1)
  - DRUG EFFECT DECREASED [None]
